FAERS Safety Report 9374013 (Version 1)
Quarter: 2013Q2

REPORT INFORMATION
  Report Type: Spontaneous
  Country: US (occurrence: None)
  Receive Date: 20130627
  Receipt Date: 20130627
  Transmission Date: 20140414
  Serious: Yes (Life-Threatening, Hospitalization)
  Sender: FDA-Public Use
  Company Number: None

PATIENT
  Age: 60 Year
  Sex: Male
  Weight: 74.1 kg

DRUGS (2)
  1. WARFARIN [Suspect]
     Indication: DEEP VEIN THROMBOSIS
     Route: 048
     Dates: start: 19890101, end: 20130530
  2. WARFARIN [Suspect]
     Indication: PROTEIN C DEFICIENCY
     Route: 048
     Dates: start: 19890101, end: 20130530

REACTIONS (1)
  - Anaemia [None]
